FAERS Safety Report 11825761 (Version 1)
Quarter: 2015Q4

REPORT INFORMATION
  Report Type: Spontaneous
  Country: US (occurrence: US)
  Receive Date: 20151211
  Receipt Date: 20151211
  Transmission Date: 20160305
  Serious: No
  Sender: FDA-Public Use
  Company Number: US-009507513-1512USA005845

PATIENT
  Age: 28 Year
  Sex: Female
  Weight: 108.84 kg

DRUGS (1)
  1. NUVARING [Suspect]
     Active Substance: ETHINYL ESTRADIOL\ETONOGESTREL
     Indication: CONTRACEPTION
     Dosage: UNK, STRENGTH REPORTED AS ^0.015/0.12^
     Route: 067
     Dates: start: 2002

REACTIONS (2)
  - Abdominal pain lower [Unknown]
  - Headache [Unknown]

NARRATIVE: CASE EVENT DATE: 201511
